FAERS Safety Report 7767203-X (Version None)
Quarter: 2011Q3

REPORT INFORMATION
  Report Type: 
  Country: None (occurrence: None)
  Receive Date: 20110922
  Receipt Date: 20100616
  Transmission Date: 20111222
  Serious: No
  Sender: FDA-Public Use
  Company Number: US-ASTRAZENECA-2010SE28140

PATIENT
  Age: 50 Year
  Sex: Female
  Weight: 133.8 kg

DRUGS (10)
  1. PAXIL [Concomitant]
  2. AMARYL [Concomitant]
  3. AMBIEN [Concomitant]
  4. GEODON [Concomitant]
  5. SEROQUEL XR [Suspect]
     Indication: BIPOLAR DISORDER
     Route: 048
     Dates: start: 20090101, end: 20100101
  6. WELLBUTRIN [Concomitant]
  7. EXFORGE [Concomitant]
  8. SIMVASTATIN [Concomitant]
  9. METFORMIN HCL [Concomitant]
  10. LANOXIPRIL HCTZ [Concomitant]

REACTIONS (5)
  - INSOMNIA [None]
  - DRUG DOSE OMISSION [None]
  - HEADACHE [None]
  - DISTURBANCE IN ATTENTION [None]
  - DECREASED APPETITE [None]
